FAERS Safety Report 7613040-6 (Version None)
Quarter: 2011Q3

REPORT INFORMATION
  Report Type: 
  Country: None (occurrence: None)
  Receive Date: 20110713
  Receipt Date: 20110502
  Transmission Date: 20111222
  Serious: No
  Sender: FDA-Public Use
  Company Number: US-005271

PATIENT
  Sex: Male
  Weight: 96.6162 kg

DRUGS (2)
  1. INSULIN [Concomitant]
  2. DEGARELIX 80 MG [Suspect]
     Indication: PROSTATE CANCER
     Dosage: (80 MG 1X/MONTH SUBCUTANEOUS)
     Route: 058
     Dates: start: 20110429

REACTIONS (2)
  - DRUG ADMINISTERED AT INAPPROPRIATE SITE [None]
  - PAIN IN EXTREMITY [None]
